FAERS Safety Report 9709079 (Version 1)
Quarter: 2013Q4

REPORT INFORMATION
  Report Type: Spontaneous
  Country: GR (occurrence: GR)
  Receive Date: 20131125
  Receipt Date: 20131125
  Transmission Date: 20140711
  Serious: Yes (Other)
  Sender: FDA-Public Use
  Company Number: GR-UCBSA-103641

PATIENT
  Age: 45 Year
  Sex: Female

DRUGS (1)
  1. VIMPAT [Suspect]
     Indication: EPILEPSY
     Route: 048
     Dates: end: 201311

REACTIONS (2)
  - Obsessive-compulsive disorder [Recovered/Resolved]
  - Hallucination [Recovered/Resolved]
